FAERS Safety Report 25852551 (Version 4)
Quarter: 2025Q4

REPORT INFORMATION
  Report Type: Report from Study
  Country: US (occurrence: US)
  Receive Date: 20250926
  Receipt Date: 20251103
  Transmission Date: 20260118
  Serious: Yes (Other)
  Sender: MALLINCKRODT
  Company Number: US-MALLINCKRODT-MNK202506011

PATIENT
  Age: 79 Year
  Sex: Female

DRUGS (2)
  1. CORTICOTROPIN [Suspect]
     Active Substance: CORTICOTROPIN
     Indication: Sarcoidosis
     Dosage: 40 UNITS
     Route: 058
     Dates: start: 20250924, end: 2025
  2. CORTICOTROPIN [Suspect]
     Active Substance: CORTICOTROPIN
     Dosage: 40 UNITS
     Dates: start: 2025

REACTIONS (11)
  - Sarcoidosis [Unknown]
  - Condition aggravated [Unknown]
  - Dysphonia [Not Recovered/Not Resolved]
  - Sensitivity to weather change [Not Recovered/Not Resolved]
  - Dizziness [Unknown]
  - Fall [Unknown]
  - Hypertension [Unknown]
  - Blood glucose increased [Recovering/Resolving]
  - Weight increased [Unknown]
  - Heart rate increased [Unknown]
  - Injection site haemorrhage [Unknown]

NARRATIVE: CASE EVENT DATE: 20250101
